FAERS Safety Report 8270582-0 (Version None)
Quarter: 2012Q2

REPORT INFORMATION
  Report Type: 
  Country: None (occurrence: None)
  Receive Date: 20120410
  Receipt Date: 20120329
  Transmission Date: 20120825
  Serious: Yes (Hospitalization)
  Sender: FDA-Public Use
  Company Number: US-BRISTOL-MYERS SQUIBB COMPANY-16451940

PATIENT
  Age: 49 Year
  Sex: Female
  Weight: 57 kg

DRUGS (10)
  1. PANTHENOL [Concomitant]
     Dates: start: 20110616
  2. VENTOLIN [Concomitant]
     Dates: start: 20110616
  3. CETUXIMAB [Suspect]
     Indication: HEAD AND NECK CANCER
     Dosage: 30JAN12-12MAR12 43 DAYS,26MAR12-UNK
     Route: 042
     Dates: start: 20120130
  4. MIRALAX [Concomitant]
     Dates: start: 20120220
  5. CARBOPLATIN [Suspect]
     Indication: HEAD AND NECK CANCER
     Dosage: 30JAN12-12MAR12 43 DAYS,26MAR12-UNK 3.75 AUC
     Route: 065
     Dates: start: 20120130
  6. VITAMIN B-12 [Concomitant]
     Dates: start: 20120113
  7. ADVAIR DISKUS 100/50 [Concomitant]
     Dates: start: 20110616
  8. PEMETREXED DISODIUM [Suspect]
     Indication: HEAD AND NECK CANCER
     Dosage: 30JAN12-12MAR12 500MG/M2,26MAR12-UNK 375MG/M2
     Route: 042
     Dates: start: 20120130
  9. FOLIC ACID [Concomitant]
     Dates: start: 20120113
  10. ENSURE [Concomitant]
     Dates: start: 20120118

REACTIONS (7)
  - NEUTROPHIL COUNT DECREASED [None]
  - SOFT TISSUE INFECTION [None]
  - ANAEMIA [None]
  - MUSCULAR WEAKNESS [None]
  - PLATELET COUNT DECREASED [None]
  - CHEST PAIN [None]
  - DYSPNOEA [None]
